FAERS Safety Report 13074386 (Version 1)
Quarter: 2016Q4

REPORT INFORMATION
  Report Type: Report from Study
  Country: US (occurrence: US)
  Receive Date: 20161230
  Receipt Date: 20161230
  Transmission Date: 20170207
  Serious: No
  Sender: FDA-Public Use
  Company Number: US-AMGEN-USASL2016181976

PATIENT
  Age: 57 Year
  Sex: Female

DRUGS (6)
  1. MELATONIN [Concomitant]
     Active Substance: MELATONIN
     Indication: INSOMNIA
     Dosage: 10 MG, UNK
     Dates: start: 2008
  2. CENTRUM SILVER [Concomitant]
     Active Substance: MINERALS\VITAMINS
     Dosage: UNK
  3. ENBREL [Suspect]
     Active Substance: ETANERCEPT
     Indication: PSORIASIS
     Dosage: 50 MG, QWK
     Route: 065
  4. ESCITALOPRAM [Concomitant]
     Active Substance: ESCITALOPRAM OXALATE
     Indication: NERVOUS SYSTEM DISORDER
     Dosage: 10 MG, QD
  5. ENBREL [Suspect]
     Active Substance: ETANERCEPT
     Indication: RHEUMATOID ARTHRITIS
     Dosage: UNK
     Route: 065
     Dates: end: 2016
  6. ENBREL [Suspect]
     Active Substance: ETANERCEPT
     Dosage: UNK
     Route: 065
     Dates: start: 2016

REACTIONS (13)
  - Hypersensitivity [Unknown]
  - Injection site erythema [Unknown]
  - Onychomadesis [Not Recovered/Not Resolved]
  - Drug dose omission [Unknown]
  - Intentional product misuse [Unknown]
  - Psoriasis [Not Recovered/Not Resolved]
  - Injection site haemorrhage [Unknown]
  - Drug effect incomplete [Unknown]
  - Alopecia [Unknown]
  - Injection site swelling [Unknown]
  - Injection site pain [Unknown]
  - Wrong technique in product usage process [Unknown]
  - Contusion [Unknown]

NARRATIVE: CASE EVENT DATE: 2013
